FAERS Safety Report 8885189 (Version 1)
Quarter: 2012Q4

REPORT INFORMATION
  Report Type: 
  Country: GB (occurrence: GB)
  Receive Date: 20121105
  Receipt Date: 20121105
  Transmission Date: 20130627
  Serious: Yes (Other)
  Sender: FDA-Public Use
  Company Number: GB-009507513-2012SP001634

PATIENT
  Age: 18 Year
  Sex: Female
  Weight: 54 kg

DRUGS (5)
  1. NEXPLANON [Suspect]
     Indication: CONTRACEPTION
     Dosage: 68 mg, UNK
     Route: 059
     Dates: start: 201103
  2. LAMOTRIGINE [Interacting]
     Indication: EPILEPSY
     Dosage: 200 mg, BID
     Route: 048
     Dates: start: 201011
  3. KEPPRA [Suspect]
     Indication: PRODUCT USED FOR UNKNOWN INDICATION
     Dosage: UNK UNK, Unknown
     Route: 065
  4. DOXYCYCLINE [Concomitant]
     Indication: SINUSITIS
     Dosage: UNK UNK, Unknown
     Route: 048
  5. LORATADINE [Concomitant]
     Indication: SEASONAL ALLERGY
     Dosage: 10 mg, QD
     Route: 048
     Dates: start: 201105

REACTIONS (3)
  - Convulsion [Unknown]
  - Drug interaction [Not Recovered/Not Resolved]
  - Epilepsy [Not Recovered/Not Resolved]
